FAERS Safety Report 7336484-9 (Version None)
Quarter: 2011Q1

REPORT INFORMATION
  Report Type: 
  Country: None (occurrence: None)
  Receive Date: 20110307
  Receipt Date: 20110222
  Transmission Date: 20110831
  Serious: Yes (Hospitalization)
  Sender: FDA-Public Use
  Company Number: KR-MYLANLABS-2011S1003832

PATIENT
  Age: 60 Year
  Sex: Female

DRUGS (3)
  1. ALPRAZOLAM [Suspect]
     Indication: SUICIDE ATTEMPT
     Route: 048
  2. MIRTAZAPINE [Suspect]
     Indication: SUICIDE ATTEMPT
     Route: 048
  3. BUSPIRONE [Suspect]
     Indication: SUICIDE ATTEMPT
     Route: 048

REACTIONS (5)
  - SUICIDE ATTEMPT [None]
  - ATELECTASIS [None]
  - INTENTIONAL OVERDOSE [None]
  - DEPRESSED LEVEL OF CONSCIOUSNESS [None]
  - ELECTROCARDIOGRAM QT PROLONGED [None]
